FAERS Safety Report 10789800 (Version 2)
Quarter: 2015Q1

REPORT INFORMATION
  Report Type: Spontaneous
  Country: IT (occurrence: IT)
  Receive Date: 20150212
  Receipt Date: 20150316
  Transmission Date: 20150721
  Serious: Yes (Other)
  Sender: FDA-Public Use
  Company Number: IT-SA-2015SA016122

PATIENT
  Age: 50 Year
  Sex: Female

DRUGS (1)
  1. FERLIXIT [Suspect]
     Active Substance: SODIUM FERRIC GLUCONATE COMPLEX
     Indication: IRON DEFICIENCY ANAEMIA
     Route: 042
     Dates: start: 20140910, end: 20140912

REACTIONS (6)
  - Infusion site pain [Recovered/Resolved]
  - Dermatitis bullous [Recovered/Resolved]
  - Dysphonia [Recovered/Resolved]
  - Pollakiuria [Recovered/Resolved]
  - Infusion site swelling [Recovered/Resolved]
  - Strangury [Recovered/Resolved]

NARRATIVE: CASE EVENT DATE: 20140912
